FAERS Safety Report 22064691 (Version 2)
Quarter: 2023Q2

REPORT INFORMATION
  Report Type: Spontaneous
  Country: US (occurrence: US)
  Receive Date: 20230306
  Receipt Date: 20230505
  Transmission Date: 20230722
  Serious: No
  Sender: FDA-Public Use
  Company Number: US-JNJFOC-20230260941

PATIENT
  Sex: Female

DRUGS (1)
  1. WOMENS ROGAINE UNSCENTED [Suspect]
     Active Substance: MINOXIDIL
     Indication: Product used for unknown indication
     Route: 065

REACTIONS (4)
  - Product residue present [Unknown]
  - Hair disorder [Unknown]
  - Trichorrhexis [Unknown]
  - Alopecia [Unknown]
